FAERS Safety Report 23001532 (Version 2)
Quarter: 2023Q4

REPORT INFORMATION
  Report Type: Spontaneous
  Country: US (occurrence: US)
  Receive Date: 20230928
  Receipt Date: 20231222
  Transmission Date: 20240110
  Serious: Yes (Other)
  Sender: FDA-Public Use
  Company Number: US-TEVA-2023-US-2928830

PATIENT
  Age: 53 Year

DRUGS (1)
  1. COPAXONE [Suspect]
     Active Substance: GLATIRAMER ACETATE
     Indication: Product used for unknown indication
     Dosage: DOSAGE TEXT: FORM STRENGTH: UNKNOWN
     Route: 065
     Dates: end: 20220811

REACTIONS (5)
  - Multiple sclerosis relapse [Recovering/Resolving]
  - Blepharospasm [Unknown]
  - Facial paralysis [Unknown]
  - Hypoaesthesia [Unknown]
  - Dizziness [Unknown]
